FAERS Safety Report 6066774-1 (Version None)
Quarter: 2009Q1

REPORT INFORMATION
  Report Type: 
  Country: None (occurrence: None)
  Receive Date: 20090205
  Receipt Date: 20090127
  Transmission Date: 20090719
  Serious: Yes (Other)
  Sender: FDA-Public Use
  Company Number: PT-ASTRAZENECA-2009AC00463

PATIENT
  Sex: Male

DRUGS (9)
  1. SEROQUEL [Suspect]
     Indication: SCHIZOPHRENIA
     Route: 048
     Dates: start: 20090108, end: 20090110
  2. OLANZAPINE [Concomitant]
     Dates: start: 20081222, end: 20090108
  3. OLANZAPINE [Concomitant]
     Dates: start: 20090110
  4. DIAZEPAM [Concomitant]
     Dates: start: 20081222
  5. BIPERIDEN HYDROCHLORIDE TAB [Concomitant]
     Dates: start: 20081222
  6. HALDOL [Concomitant]
     Dates: start: 20081222
  7. HALDOL [Concomitant]
     Dates: start: 20081226
  8. VALPROATE SODIUM + VALPROIC ACID [Concomitant]
     Dates: start: 20081226
  9. LITHIUM CARBONATE [Concomitant]
     Dates: start: 20081226

REACTIONS (8)
  - COORDINATION ABNORMAL [None]
  - DIPLOPIA [None]
  - DYSPHAGIA [None]
  - HYPOKINESIA [None]
  - MUSCLE RIGIDITY [None]
  - SALIVARY HYPERSECRETION [None]
  - SOMNOLENCE [None]
  - SPEECH DISORDER [None]
